FAERS Safety Report 18876266 (Version 1)
Quarter: 2021Q1

REPORT INFORMATION
  Report Type: Spontaneous
  Country: SA (occurrence: SA)
  Receive Date: 20210211
  Receipt Date: 20210211
  Transmission Date: 20210420
  Serious: Yes (Life-Threatening, Other)
  Sender: FDA-Public Use
  Company Number: SA-RNT-000005

PATIENT
  Age: 27 Year
  Sex: Female

DRUGS (2)
  1. RISPERIDONE. [Suspect]
     Active Substance: RISPERIDONE
     Indication: SCHIZOPHRENIA
     Dosage: REDUCED DOSAGE TO 2 MG
     Route: 065
  2. BENZATROPINE [Suspect]
     Active Substance: BENZTROPINE
     Indication: SCHIZOPHRENIA
     Route: 065

REACTIONS (9)
  - Tachypnoea [Recovered/Resolved]
  - Blood lactic acid increased [Recovered/Resolved]
  - Stress [Recovered/Resolved]
  - Panic attack [Recovered/Resolved]
  - Anaphylactic reaction [Recovered/Resolved]
  - Tachycardia [Recovered/Resolved]
  - Spasmodic dysphonia [Recovered/Resolved]
  - Respiratory acidosis [Recovered/Resolved]
  - Leukocytosis [Recovered/Resolved]
